FAERS Safety Report 5358301-9 (Version None)
Quarter: 2007Q2

REPORT INFORMATION
  Report Type: 
  Country: None (occurrence: None)
  Receive Date: 20070614
  Receipt Date: 20070614
  Transmission Date: 20071010
  Serious: Yes (Life-Threatening, Hospitalization, Other)
  Sender: FDA-Public Use
  Company Number: None

PATIENT
  Age: 65 Year
  Sex: Female
  Weight: 112 kg

DRUGS (13)
  1. HEPARIN [Suspect]
     Indication: PULMONARY EMBOLISM
     Dosage: 1500UNITS/HR CONTINUOUS IV
     Route: 042
     Dates: start: 20070610, end: 20070612
  2. TPN [Concomitant]
  3. LIPIDS [Concomitant]
  4. LEVOPHED [Concomitant]
  5. LEVAQUIN [Concomitant]
  6. ZOSYN [Concomitant]
  7. PEPCID [Concomitant]
  8. REGLAN [Concomitant]
  9. LANTUS [Concomitant]
  10. REGULAR INSULIN [Concomitant]
  11. HYDROCORTISONE [Concomitant]
  12. PROSTIGMIN BROMIDE [Concomitant]
  13. VARIOUS VITAMINS [Concomitant]

REACTIONS (1)
  - HEPARIN-INDUCED THROMBOCYTOPENIA [None]
